FAERS Safety Report 16264041 (Version 2)
Quarter: 2019Q2

REPORT INFORMATION
  Report Type: Spontaneous
  Country: FR (occurrence: FR)
  Receive Date: 20190502
  Receipt Date: 20190515
  Transmission Date: 20190711
  Serious: Yes (Hospitalization)
  Sender: FDA-Public Use
  Company Number: FR-ELI_LILLY_AND_COMPANY-FR201904013819

PATIENT
  Sex: Female

DRUGS (8)
  1. CORTISONE [Concomitant]
     Active Substance: CORTISONE\HYDROCORTISONE
     Indication: PRODUCT USED FOR UNKNOWN INDICATION
  2. MORPHINE [Concomitant]
     Active Substance: MORPHINE
     Indication: PRODUCT USED FOR UNKNOWN INDICATION
  3. LAROXYL [Concomitant]
     Active Substance: AMITRIPTYLINE HYDROCHLORIDE
     Indication: PRODUCT USED FOR UNKNOWN INDICATION
     Dosage: UNKNOWN DOSE, 8 DROPS OF LAROXYL
  4. VERZENIOS 150MG [Suspect]
     Active Substance: ABEMACICLIB
     Indication: BREAST CANCER METASTATIC
     Dosage: 150 MG, BID
     Route: 065
     Dates: end: 20190416
  5. PAROXETINE. [Concomitant]
     Active Substance: PAROXETINE
     Dosage: 1 DOSAGE FORM
  6. VERZENIOS 150MG [Suspect]
     Active Substance: ABEMACICLIB
     Dosage: NEW PROTOCOL WITH ABEMACICLIB AT UNSPECIFIED DOSE
     Route: 065
  7. FUROSEMIDE. [Concomitant]
     Active Substance: FUROSEMIDE
     Indication: PRODUCT USED FOR UNKNOWN INDICATION
  8. FEMARA [Concomitant]
     Active Substance: LETROZOLE
     Indication: CHEMOTHERAPY

REACTIONS (10)
  - Decreased appetite [Unknown]
  - Gait inability [Unknown]
  - Muscle spasms [Unknown]
  - Feeling of body temperature change [Unknown]
  - Nausea [Unknown]
  - Agitation [Unknown]
  - Disorientation [Unknown]
  - Neutrophil count decreased [Unknown]
  - Fatigue [Unknown]
  - Asthenia [Unknown]

NARRATIVE: CASE EVENT DATE: 20190418
